FAERS Safety Report 15852989 (Version 7)
Quarter: 2019Q2

REPORT INFORMATION
  Report Type: Report from Study
  Country: CL (occurrence: CL)
  Receive Date: 20190122
  Receipt Date: 20190627
  Transmission Date: 20190711
  Serious: Yes (Hospitalization, Disabling, Other)
  Sender: FDA-Public Use
  Company Number: PHHY2019CL008590

PATIENT
  Age: 54 Year
  Sex: Female
  Weight: 58 kg

DRUGS (5)
  1. KISQALI [Suspect]
     Active Substance: RIBOCICLIB
     Dosage: UNK
     Route: 048
     Dates: start: 20190123, end: 20190207
  2. KISQALI [Suspect]
     Active Substance: RIBOCICLIB
     Indication: BREAST CANCER
     Dosage: 600 MG, UNK
     Route: 048
     Dates: start: 20181227, end: 20190517
  3. KISQALI [Suspect]
     Active Substance: RIBOCICLIB
     Dosage: 400 MG, QD (THREE WEEKS ON AND 1 OFF)
     Route: 048
  4. KISQALI [Suspect]
     Active Substance: RIBOCICLIB
     Dosage: 600 MG, UNK
     Route: 048
     Dates: start: 20190527
  5. KISQALI [Suspect]
     Active Substance: RIBOCICLIB
     Dosage: 600 MG, UNK
     Route: 048
     Dates: start: 20190208

REACTIONS (26)
  - Leukopenia [Recovering/Resolving]
  - Alanine aminotransferase increased [Unknown]
  - Platelet count decreased [Unknown]
  - Visual impairment [Not Recovered/Not Resolved]
  - Colitis [Recovering/Resolving]
  - Febrile neutropenia [Unknown]
  - White blood cell count decreased [Unknown]
  - Pyrexia [Recovering/Resolving]
  - Electrocardiogram Q waves [Not Recovered/Not Resolved]
  - Bundle branch block left [Not Recovered/Not Resolved]
  - Electrocardiogram ST segment abnormal [Not Recovered/Not Resolved]
  - Optic neuritis [Not Recovered/Not Resolved]
  - Microangiopathy [Unknown]
  - Electrocardiogram abnormal [Not Recovered/Not Resolved]
  - Gastrointestinal infection [Recovering/Resolving]
  - Arthropod sting [Unknown]
  - Gamma-glutamyltransferase increased [Unknown]
  - Constipation [Recovering/Resolving]
  - Alopecia [Not Recovered/Not Resolved]
  - Anaphylactic shock [Unknown]
  - Electrocardiogram T wave inversion [Not Recovered/Not Resolved]
  - Aspartate aminotransferase increased [Unknown]
  - Inappropriate schedule of product administration [Unknown]
  - Metastases to eye [Unknown]
  - Vision blurred [Not Recovered/Not Resolved]
  - Liver function test abnormal [Unknown]

NARRATIVE: CASE EVENT DATE: 20190111
